FAERS Safety Report 5806089-7 (Version None)
Quarter: 2008Q3

REPORT INFORMATION
  Report Type: 
  Country: None (occurrence: None)
  Receive Date: 20080709
  Receipt Date: 20080709
  Transmission Date: 20090109
  Serious: No
  Sender: FDA-Public Use
  Company Number: None

PATIENT
  Age: 61 Year
  Sex: Male
  Weight: 133 kg

DRUGS (1)
  1. ALPROSTADIL [Suspect]
     Indication: ERECTILE DYSFUNCTION
     Dosage: 40 MCG PRN OTHER
     Route: 050
     Dates: start: 20070612

REACTIONS (2)
  - PRIAPISM [None]
  - THERAPEUTIC RESPONSE UNEXPECTED [None]
